FAERS Safety Report 8088615 (Version 2)
Quarter: 2015Q1

REPORT INFORMATION
  Report Type: Spontaneous
  Country: US (occurrence: US)
  Receive Date: 20110812
  Receipt Date: 20150120
  Transmission Date: 20150721
  Serious: Yes (Other)
  Sender: FDA-Public Use
  Company Number: US-ASTRAZENECA-2011SE46575

PATIENT
  Age: 63 Year
  Sex: Female
  Weight: 170.1 kg

DRUGS (16)
  1. NEXIUM [Suspect]
     Active Substance: ESOMEPRAZOLE MAGNESIUM
     Indication: GASTROOESOPHAGEAL REFLUX DISEASE
     Route: 048
     Dates: start: 2001
  2. NEXIUM [Suspect]
     Active Substance: ESOMEPRAZOLE MAGNESIUM
     Indication: ABDOMINAL PAIN UPPER
     Route: 048
     Dates: start: 2001
  3. DICYCLOMINE [Concomitant]
     Active Substance: DICYCLOMINE HYDROCHLORIDE
  4. NEXIUM [Suspect]
     Active Substance: ESOMEPRAZOLE MAGNESIUM
     Indication: GASTROOESOPHAGEAL REFLUX DISEASE
     Route: 048
     Dates: start: 2001
  5. CLONAZEPAM. [Concomitant]
     Active Substance: CLONAZEPAM
     Indication: RESTLESS LEGS SYNDROME
     Dates: start: 1999
  6. WARFARIN [Concomitant]
     Active Substance: WARFARIN
  7. CLONAZEPAM. [Concomitant]
     Active Substance: CLONAZEPAM
     Indication: RESTLESS LEGS SYNDROME
  8. CARBIDOPA LEVODOPA [Concomitant]
     Active Substance: CARBIDOPA\LEVODOPA
     Indication: RESTLESS LEGS SYNDROME
     Dosage: 25/100 MG ONCE AT NIGHT
     Dates: start: 1999
  9. METOPROLOL TARTRATE. [Concomitant]
     Active Substance: METOPROLOL TARTRATE
     Indication: HEART RATE ABNORMAL
     Dates: start: 2006
  10. VASOTEC [Concomitant]
     Active Substance: ENALAPRIL MALEATE
     Dates: start: 1985
  11. OTHER OTC [Concomitant]
     Active Substance: UNSPECIFIED INGREDIENT
  12. DICYCLOMINE [Concomitant]
     Active Substance: DICYCLOMINE HYDROCHLORIDE
     Dates: start: 1999
  13. PEPCID [Concomitant]
     Active Substance: FAMOTIDINE
  14. PROTONIX [Concomitant]
     Active Substance: PANTOPRAZOLE SODIUM
  15. ENALAPRIL [Concomitant]
     Active Substance: ENALAPRIL
     Indication: HYPERTENSION
     Dates: start: 2006
  16. GABEPENTIN [Concomitant]
     Indication: NEUROPATHY PERIPHERAL
     Dates: start: 201404

REACTIONS (9)
  - Malaise [Unknown]
  - Diarrhoea [Unknown]
  - Atrial fibrillation [Unknown]
  - Cardiac failure congestive [Unknown]
  - Abdominal discomfort [Unknown]
  - Intentional product misuse [Unknown]
  - Abdominal pain [Unknown]
  - Nausea [Unknown]
  - Flatulence [Unknown]

NARRATIVE: CASE EVENT DATE: 2006
